FAERS Safety Report 5402352-2 (Version None)
Quarter: 2007Q3

REPORT INFORMATION
  Report Type: 
  Country: None (occurrence: None)
  Receive Date: 20070801
  Receipt Date: 20070723
  Transmission Date: 20080115
  Serious: Yes (Hospitalization)
  Sender: FDA-Public Use
  Company Number: FR-ELI_LILLY_AND_COMPANY-FR200706003077

PATIENT
  Age: 74 Year
  Sex: Female
  Weight: 67.9 kg

DRUGS (5)
  1. FORTEO [Suspect]
     Indication: OSTEOPOROSIS
     Dosage: 20 UG, DAILY (1/D)
     Route: 058
     Dates: start: 20060919
  2. LIPANTHYL [Concomitant]
     Dosage: 1 D/F, DAILY (1/D)
     Route: 048
  3. TRAMADOL HCL [Concomitant]
     Indication: BONE PAIN
     Dosage: 300 MG, UNKNOWN
     Route: 048
  4. BENAZEPRIL HCL [Concomitant]
     Indication: HYPERTENSION
     Dosage: 10 MG, DAILY (1/D)
     Route: 048
  5. LORAZEPAM [Concomitant]
     Indication: ANXIETY
     Dosage: 1 MG, UNKNOWN
     Route: 048

REACTIONS (2)
  - FALL [None]
  - WRIST FRACTURE [None]
